FAERS Safety Report 14462374 (Version 8)
Quarter: 2018Q2

REPORT INFORMATION
  Report Type: Spontaneous
  Country: US (occurrence: US)
  Receive Date: 20180130
  Receipt Date: 20180619
  Transmission Date: 20180711
  Serious: Yes (Death, Hospitalization)
  Sender: FDA-Public Use
  Company Number: US-ACTELION-A-US2018-166528

PATIENT
  Age: 38 Year
  Sex: Female

DRUGS (4)
  1. VELETRI [Suspect]
     Active Substance: EPOPROSTENOL
     Dosage: 36 NG/KG, PER MIN
     Route: 042
  2. VELETRI [Suspect]
     Active Substance: EPOPROSTENOL
     Dosage: 46 NG/KG, PER MIN
     Route: 042
  3. VELETRI [Suspect]
     Active Substance: EPOPROSTENOL
     Indication: PULMONARY ARTERIAL HYPERTENSION
     Dosage: 30 NG/KG, PER MIN
     Route: 042
     Dates: start: 20171223
  4. OPSUMIT [Suspect]
     Active Substance: MACITENTAN
     Indication: PULMONARY ARTERIAL HYPERTENSION
     Dosage: 10 MG, QD
     Route: 048
     Dates: start: 20161208

REACTIONS (12)
  - Fluid overload [Unknown]
  - Respiratory disorder [Unknown]
  - Flushing [Recovering/Resolving]
  - Drug dose omission [Unknown]
  - Pain in jaw [Recovering/Resolving]
  - Headache [Recovering/Resolving]
  - Death [Fatal]
  - Glossodynia [Recovering/Resolving]
  - Dyspnoea [Unknown]
  - Abdominal cavity drainage [Unknown]
  - Nausea [Recovering/Resolving]
  - Intra-abdominal fluid collection [Unknown]

NARRATIVE: CASE EVENT DATE: 2018
